FAERS Safety Report 12094882 (Version 1)
Quarter: 2016Q1

REPORT INFORMATION
  Report Type: Spontaneous
  Country: GB (occurrence: GB)
  Receive Date: 20160219
  Receipt Date: 20160219
  Transmission Date: 20160526
  Serious: Yes (Disabling)
  Sender: FDA-Public Use
  Company Number: ALCN2016GB001315

PATIENT
  Age: 53 Year
  Sex: Male
  Weight: 69.85 kg

DRUGS (1)
  1. MAXIDEX [Suspect]
     Active Substance: DEXAMETHASONE
     Indication: LASER THERAPY
     Dosage: 1 DF, TID
     Route: 047

REACTIONS (2)
  - Drug monitoring procedure not performed [Unknown]
  - Hemianopia [Not Recovered/Not Resolved]
